FAERS Safety Report 6273287-0 (Version None)
Quarter: 2009Q3

REPORT INFORMATION
  Report Type: 
  Country: None (occurrence: None)
  Receive Date: 20090720
  Receipt Date: 20090708
  Transmission Date: 20100115
  Serious: Yes (Hospitalization)
  Sender: FDA-Public Use
  Company Number: US-ROCHE-614033

PATIENT
  Sex: Female
  Weight: 66.7 kg

DRUGS (2)
  1. CAPECITABINE [Suspect]
     Dosage: TAKEN 4 TABLETS DAILY, DISCONTINUED PERMANENTLY
     Route: 048
     Dates: start: 20081018, end: 20090610
  2. GEMZAR [Concomitant]
     Route: 042

REACTIONS (3)
  - FALL [None]
  - PELVIC FRACTURE [None]
  - THERAPEUTIC RESPONSE DECREASED [None]
